FAERS Safety Report 12429504 (Version 2)
Quarter: 2016Q3

REPORT INFORMATION
  Report Type: Spontaneous
  Country: CH (occurrence: CH)
  Receive Date: 20160602
  Receipt Date: 20160706
  Transmission Date: 20161109
  Serious: Yes (Hospitalization)
  Sender: FDA-Public Use
  Company Number: CH-ENDO PHARMACEUTICALS INC.-2016-003528

PATIENT
  Age: 52 Year
  Sex: Male

DRUGS (2)
  1. AVEED [Suspect]
     Active Substance: TESTOSTERONE UNDECANOATE
     Indication: TESTICULAR GERM CELL TUMOUR
     Route: 030
     Dates: start: 20160322, end: 20160322
  2. AVEED [Suspect]
     Active Substance: TESTOSTERONE UNDECANOATE
     Indication: ANDROGEN REPLACEMENT THERAPY
     Route: 065
     Dates: start: 2009

REACTIONS (2)
  - Fasciitis [Recovering/Resolving]
  - Septic arthritis staphylococcal [Recovering/Resolving]

NARRATIVE: CASE EVENT DATE: 20160323
